FAERS Safety Report 5233109-3 (Version None)
Quarter: 2007Q1

REPORT INFORMATION
  Report Type: 
  Country: None (occurrence: None)
  Receive Date: 20070207
  Receipt Date: 20070126
  Transmission Date: 20070707
  Serious: Yes (Hospitalization)
  Sender: FDA-Public Use
  Company Number: PL-PFIZER INC-2006109094

PATIENT
  Sex: Male
  Weight: 76 kg

DRUGS (9)
  1. SU-011,248 [Suspect]
     Indication: RENAL CELL CARCINOMA STAGE UNSPECIFIED
     Route: 048
  2. ENARENAL [Concomitant]
     Route: 048
     Dates: start: 20010615, end: 20060630
  3. CLONAZEPAM [Concomitant]
     Route: 048
     Dates: start: 20060301
  4. KETONAL [Concomitant]
     Route: 048
     Dates: start: 20051018, end: 20060925
  5. ASPIRIN [Concomitant]
     Route: 048
     Dates: start: 20060624, end: 20061117
  6. METOHEXAL [Concomitant]
     Route: 048
     Dates: start: 20060624, end: 20060925
  7. METFORMAX [Concomitant]
     Route: 048
     Dates: start: 20060624, end: 20060925
  8. PRINIVIL [Concomitant]
     Route: 048
     Dates: start: 20060624
  9. OMEPRAZOLE [Concomitant]
     Route: 048
     Dates: start: 20060624

REACTIONS (2)
  - DIABETES MELLITUS [None]
  - VASCULAR INSUFFICIENCY [None]
